FAERS Safety Report 5734072-9 (Version None)
Quarter: 2008Q2

REPORT INFORMATION
  Report Type: 
  Country: None (occurrence: None)
  Receive Date: 20080509
  Receipt Date: 20080429
  Transmission Date: 20081010
  Serious: Yes (Congenital Anomaly, Other)
  Sender: FDA-Public Use
  Company Number: GB-ABBOTT-08P-167-0449754-00

PATIENT
  Age: 1 Day
  Sex: Female
  Weight: 3.16 kg

DRUGS (1)
  1. VALPROATE SODIUM [Suspect]
     Indication: DRUG EXPOSURE DURING PREGNANCY
     Route: 064

REACTIONS (19)
  - ABDOMINAL PAIN [None]
  - ANXIETY DISORDER [None]
  - ASTHMA [None]
  - DISTURBANCE IN ATTENTION [None]
  - DRUG EXPOSURE DURING PREGNANCY [None]
  - DYSMORPHISM [None]
  - EMOTIONAL DISORDER [None]
  - ENURESIS [None]
  - FOETAL ANTICONVULSANT SYNDROME [None]
  - INFECTION [None]
  - INSOMNIA [None]
  - MEMORY IMPAIRMENT [None]
  - MUSCULOSKELETAL PAIN [None]
  - PAIN IN EXTREMITY [None]
  - PERTUSSIS [None]
  - PETIT MAL EPILEPSY [None]
  - SOMNOLENCE [None]
  - STRESS [None]
  - URINARY TRACT INFECTION [None]
